FAERS Safety Report 5088937-4 (Version None)
Quarter: 2006Q3

REPORT INFORMATION
  Report Type: 
  Country: None (occurrence: None)
  Receive Date: 20060825
  Receipt Date: 20060816
  Transmission Date: 20061208
  Serious: Yes (Death)
  Sender: FDA-Public Use
  Company Number: US-JNJFOC-20060804135

PATIENT
  Sex: Female

DRUGS (1)
  1. DURAGESIC-100 [Suspect]
     Indication: BONE NEOPLASM MALIGNANT
     Dosage: PATIENT WAS USING FENTANYL FOR 3-4 YEARS.
     Route: 062

REACTIONS (1)
  - DEATH [None]
